FAERS Safety Report 4539868-7 (Version None)
Quarter: 2004Q4

REPORT INFORMATION
  Report Type: 
  Country: None (occurrence: None)
  Receive Date: 20041223
  Receipt Date: 20041217
  Transmission Date: 20050328
  Serious: Yes (Death)
  Sender: FDA-Public Use
  Company Number: 163-20785-04110264

PATIENT
  Age: 72 Year
  Sex: Female

DRUGS (1)
  1. THALOMID [Suspect]
     Indication: MYELODYSPLASTIC SYNDROME
     Dosage: 200 MG, DAILY, ORAL
     Route: 048
     Dates: start: 20040830, end: 20041004

REACTIONS (1)
  - ADENOCARCINOMA [None]
